FAERS Safety Report 24778225 (Version 1)
Quarter: 2024Q4

REPORT INFORMATION
  Report Type: Report from Study
  Country: UY (occurrence: UY)
  Receive Date: 20241226
  Receipt Date: 20241226
  Transmission Date: 20250114
  Serious: Yes (Other)
  Sender: ABBVIE
  Company Number: UY-ABBVIE-6035361

PATIENT
  Age: 56 Year
  Sex: Female

DRUGS (1)
  1. RINVOQ [Suspect]
     Active Substance: UPADACITINIB
     Indication: Rheumatoid arthritis
     Dosage: FORM STRENGTH 15 MILLIGRAM?END DATE 2024?STOP DATE TEXT: INTERRUPTED
     Route: 048
     Dates: start: 20240812

REACTIONS (5)
  - Lithiasis [Unknown]
  - Hepatic enzyme increased [Unknown]
  - Post procedural complication [Unknown]
  - Cholangitis [Unknown]
  - Hepatic function abnormal [Unknown]

NARRATIVE: CASE EVENT DATE: 20241001
